FAERS Safety Report 9779103 (Version 1)
Quarter: 2013Q4

REPORT INFORMATION
  Report Type: Spontaneous
  Country: FR (occurrence: FR)
  Receive Date: 20131223
  Receipt Date: 20131223
  Transmission Date: 20140711
  Serious: Yes (Hospitalization, Other)
  Sender: FDA-Public Use
  Company Number: FR-ELI_LILLY_AND_COMPANY-FR201312004574

PATIENT
  Age: 68 Year
  Sex: Male

DRUGS (11)
  1. HUMALOG LISPRO [Suspect]
     Indication: INSULIN-REQUIRING TYPE 2 DIABETES MELLITUS
     Dosage: UNK
     Route: 058
  2. OMEPRAZOLE [Suspect]
     Indication: PRODUCT USED FOR UNKNOWN INDICATION
     Dosage: 20 MG, QD
     Route: 065
     Dates: end: 20130925
  3. FUROSEMIDE [Suspect]
     Indication: PRODUCT USED FOR UNKNOWN INDICATION
     Dosage: 40 MG, QD
     Route: 048
     Dates: end: 20130925
  4. INNOVAIR [Suspect]
     Indication: PRODUCT USED FOR UNKNOWN INDICATION
     Dosage: 2 DF, BID
     Route: 055
  5. PLAVIX [Suspect]
     Indication: PRODUCT USED FOR UNKNOWN INDICATION
     Dosage: 75 MG, QD
     Route: 048
  6. ZOXAN LP [Suspect]
     Indication: PRODUCT USED FOR UNKNOWN INDICATION
     Dosage: 8 MG, QD
     Route: 048
  7. LANTUS [Suspect]
     Indication: PRODUCT USED FOR UNKNOWN INDICATION
     Dosage: 10 IU, EACH EVENING
     Route: 058
  8. LANTUS [Suspect]
     Dosage: UNK
     Dates: start: 20131015
  9. SPIRIVA [Suspect]
     Indication: PRODUCT USED FOR UNKNOWN INDICATION
     Dosage: 1 DF, EACH EVENING
     Route: 055
  10. TRIVASTAL /00397201/ [Suspect]
     Indication: PRODUCT USED FOR UNKNOWN INDICATION
     Dosage: 50 MG, QD
     Route: 048
  11. NEO MERCAZOLE [Concomitant]
     Indication: HYPERTHYROIDISM
     Dosage: UNK

REACTIONS (7)
  - Tubulointerstitial nephritis [Not Recovered/Not Resolved]
  - Hyperthyroidism [Recovered/Resolved]
  - Pneumonia staphylococcal [Unknown]
  - Oedema peripheral [Unknown]
  - Asthenia [Unknown]
  - Dyspnoea exertional [Unknown]
  - Weight decreased [Unknown]
